FAERS Safety Report 10074627 (Version 2)
Quarter: 2014Q2

REPORT INFORMATION
  Report Type: Spontaneous
  Country: JP (occurrence: JP)
  Receive Date: 20140414
  Receipt Date: 20140414
  Transmission Date: 20141212
  Serious: Yes (Other)
  Sender: FDA-Public Use
  Company Number: PHHY2014JP037697

PATIENT
  Age: 60 Year
  Sex: Female

DRUGS (6)
  1. PACLITAXEL [Suspect]
     Indication: BREAST CANCER
     Dosage: 80 MG/M2, UNK
  2. EPIRUBICIN [Suspect]
     Indication: BREAST CANCER
     Dosage: 75 MG/M2, UNK
  3. TAMOXIFEN [Suspect]
  4. ANASTROZOLE [Suspect]
     Dosage: 80 MG/M2, UNK
     Route: 048
  5. CYCLOPHOSPHAMIDE [Suspect]
     Indication: BREAST CANCER
     Dosage: 600 MG/M2, UNK
  6. RADIATION THERAPY [Suspect]
     Indication: BREAST CANCER

REACTIONS (6)
  - Breast cancer recurrent [Unknown]
  - Metastases to bone [Unknown]
  - Metastases to lymph nodes [Unknown]
  - Metastases to lung [Unknown]
  - Arthropathy [Unknown]
  - Vaginal discharge [Unknown]
